FAERS Safety Report 9436475 (Version 1)
Quarter: 2013Q3

REPORT INFORMATION
  Report Type: Spontaneous
  Country: BR (occurrence: BR)
  Receive Date: 20130802
  Receipt Date: 20130802
  Transmission Date: 20140515
  Serious: Yes (Death)
  Sender: FDA-Public Use
  Company Number: BR-ROCHE-1255042

PATIENT
  Age: 28 Year
  Sex: Male

DRUGS (1)
  1. VALCYTE [Suspect]
     Indication: ANTIVIRAL PROPHYLAXIS
     Route: 065

REACTIONS (2)
  - Drug ineffective [Fatal]
  - Drug resistance [Fatal]
